FAERS Safety Report 17273623 (Version 2)
Quarter: 2020Q1

REPORT INFORMATION
  Report Type: Spontaneous
  Country: GB (occurrence: GB)
  Receive Date: 20200115
  Receipt Date: 20200121
  Transmission Date: 20200409
  Serious: Yes (Death, Hospitalization, Other)
  Sender: FDA-Public Use
  Company Number: GB-PFIZER INC-2020018035

PATIENT
  Age: 26 Year
  Sex: Female

DRUGS (1)
  1. AMIODARONE HCL [Suspect]
     Active Substance: AMIODARONE HYDROCHLORIDE
     Indication: FRIEDREICH^S ATAXIA
     Dosage: 200 MG, QD
     Route: 048
     Dates: start: 20190316, end: 20191202

REACTIONS (5)
  - Product use in unapproved indication [Unknown]
  - Atrial fibrillation [Fatal]
  - Thyrotoxic crisis [Fatal]
  - Off label use [Unknown]
  - Cardiac failure [Fatal]

NARRATIVE: CASE EVENT DATE: 20190316
